FAERS Safety Report 8600960-9 (Version None)
Quarter: 2012Q3

REPORT INFORMATION
  Report Type: 
  Country: None (occurrence: None)
  Receive Date: 20120817
  Receipt Date: 20120814
  Transmission Date: 20120928
  Serious: No
  Sender: FDA-Public Use
  Company Number: US-TEVA-353821USA

PATIENT
  Sex: Male

DRUGS (1)
  1. PROAIR HFA [Suspect]
     Dosage: EVERY 3-4 HOURS

REACTIONS (2)
  - DRUG EFFECT DECREASED [None]
  - INCORRECT STORAGE OF DRUG [None]
